FAERS Safety Report 8797848 (Version 1)
Quarter: 2012Q4

REPORT INFORMATION
  Report Type: 
  Country: US (occurrence: US)
  Receive Date: 20120919
  Receipt Date: 20120919
  Transmission Date: 20130627
  Serious: No
  Sender: FDA-Public Use
  Company Number: US-ASTRAZENECA-2012SE65214

PATIENT
  Age: 30 Year
  Sex: Male

DRUGS (2)
  1. SEROQUEL XR [Suspect]
     Indication: MOOD SWINGS
     Route: 048
  2. SEROQUEL XR [Suspect]
     Indication: INSOMNIA
     Route: 048

REACTIONS (6)
  - Mood swings [Unknown]
  - Insomnia [Unknown]
  - Emotional disorder [Unknown]
  - Pain [Unknown]
  - Withdrawal syndrome [Unknown]
  - Drug dose omission [Unknown]
